APPROVED DRUG PRODUCT: XROMI
Active Ingredient: HYDROXYUREA
Strength: 100MG/ML
Dosage Form/Route: SOLUTION;ORAL
Application: N216593 | Product #001
Applicant: NOVA LABORATORIES LTD
Approved: Apr 4, 2024 | RLD: Yes | RS: Yes | Type: RX

PATENTS:
Patent 12409156 | Expires: Dec 23, 2041

EXCLUSIVITY:
Code: NP | Date: Apr 4, 2027
Code: ODE-470 | Date: Apr 4, 2031